FAERS Safety Report 9817778 (Version 1)
Quarter: 2013Q4

REPORT INFORMATION
  Report Type: Spontaneous
  Country: US (occurrence: None)
  Receive Date: 20131223
  Receipt Date: 20131223
  Transmission Date: 20140711
  Serious: Yes (Other)
  Sender: FDA-Public Use
  Company Number: 219365

PATIENT
  Age: 71 Year
  Sex: Female

DRUGS (1)
  1. PICATO [Suspect]
     Indication: ACTINIC KERATOSIS
     Route: 061
     Dates: start: 20121013

REACTIONS (7)
  - Burning sensation [None]
  - Erythema [None]
  - Dry skin [None]
  - Eye swelling [None]
  - Drug administration error [None]
  - Drug dispensing error [None]
  - Incorrect dose administered [None]
